FAERS Safety Report 8277755-1 (Version None)
Quarter: 2012Q1

REPORT INFORMATION
  Report Type: 
  Country: None (occurrence: None)
  Receive Date: 20120312
  Receipt Date: 20120202
  Transmission Date: 20120608
  Serious: No
  Sender: FDA-Public Use
  Company Number: 2012SP006518

PATIENT
  Age: 60 Year
  Sex: Female

DRUGS (4)
  1. SAPHRIS [Suspect]
     Indication: ANXIETY DISORDER
     Dosage: 5 MG;QD;SL
     Route: 060
     Dates: start: 20110101
  2. CELEXA [Concomitant]
  3. ATIVAN [Concomitant]
  4. REMERON [Concomitant]

REACTIONS (3)
  - INAPPROPRIATE SCHEDULE OF DRUG ADMINISTRATION [None]
  - UNDERDOSE [None]
  - IRRITABILITY [None]
